FAERS Safety Report 9929097 (Version 1)
Quarter: 2014Q1

REPORT INFORMATION
  Report Type: Spontaneous
  Country: AT (occurrence: AT)
  Receive Date: 20140227
  Receipt Date: 20140227
  Transmission Date: 20141002
  Serious: Yes (Death)
  Sender: FDA-Public Use
  Company Number: AT-BRISTOL-MYERS SQUIBB COMPANY-20305637

PATIENT
  Sex: 0

DRUGS (1)
  1. ONGLYZA TABS [Suspect]

REACTIONS (1)
  - Sudden death [Fatal]
